FAERS Safety Report 6912283-4 (Version None)
Quarter: 2010Q3

REPORT INFORMATION
  Report Type: 
  Country: None (occurrence: None)
  Receive Date: 20100806
  Receipt Date: 20080328
  Transmission Date: 20110219
  Serious: No
  Sender: FDA-Public Use
  Company Number: US-PFIZER INC-2008027652

PATIENT
  Sex: Male

DRUGS (4)
  1. DILANTIN [Suspect]
  2. AMBIEN [Concomitant]
  3. LANTUS [Concomitant]
  4. CELEBREX [Concomitant]

REACTIONS (2)
  - BURNING SENSATION [None]
  - PARAESTHESIA [None]
